FAERS Safety Report 9784570 (Version 1)
Quarter: 2013Q4

REPORT INFORMATION
  Report Type: Report from Study
  Country: US (occurrence: US)
  Receive Date: 20131226
  Receipt Date: 20131226
  Transmission Date: 20140711
  Serious: Yes (Hospitalization)
  Sender: FDA-Public Use
  Company Number: US-ACTELION-A-NJ2013-92660

PATIENT
  Age: 75 Year
  Sex: Female

DRUGS (4)
  1. TRACLEER [Suspect]
     Indication: COR PULMONALE CHRONIC
     Dosage: UNK
     Route: 048
  2. ASA [Concomitant]
  3. COUMADIN [Concomitant]
  4. PLAVIX [Concomitant]

REACTIONS (5)
  - Deep vein thrombosis [Unknown]
  - Pulmonary embolism [Unknown]
  - Shoulder operation [Unknown]
  - Chest discomfort [Unknown]
  - Dyspnoea [Unknown]
